FAERS Safety Report 10380715 (Version 2)
Quarter: 2018Q1

REPORT INFORMATION
  Report Type: Spontaneous
  Country: US (occurrence: US)
  Receive Date: 20140813
  Receipt Date: 20180322
  Transmission Date: 20180508
  Serious: Yes (Hospitalization)
  Sender: FDA-Public Use
  Company Number: US-BAYER-2014-117039

PATIENT
  Age: 75 Year
  Sex: Male

DRUGS (6)
  1. FLURBIPROFEN. [Suspect]
     Active Substance: FLURBIPROFEN
  2. ACETYLSALICYLIC ACID (} 100 MG) [Suspect]
     Active Substance: ASPIRIN
     Indication: HEADACHE
  3. KETOPROFEN. [Suspect]
     Active Substance: KETOPROFEN
  4. IBUPROFEN. [Suspect]
     Active Substance: IBUPROFEN
  5. KETOROLAC [Suspect]
     Active Substance: KETOROLAC\KETOROLAC TROMETHAMINE
  6. GLUCOSAMINE [Suspect]
     Active Substance: GLUCOSAMINE

REACTIONS (10)
  - Duodenal ulcer [None]
  - Gastrooesophageal reflux disease [None]
  - Nausea [Recovering/Resolving]
  - Regurgitation [None]
  - Dyspepsia [Recovering/Resolving]
  - Gastric ulcer [Recovering/Resolving]
  - Abdominal pain upper [Recovering/Resolving]
  - Potentiating drug interaction [None]
  - Vomiting [Recovering/Resolving]
  - Obstruction gastric [Recovering/Resolving]
